FAERS Safety Report 8643061 (Version 3)
Quarter: 2013Q3

REPORT INFORMATION
  Report Type: Spontaneous
  Country: US (occurrence: US)
  Receive Date: 20120629
  Receipt Date: 20130821
  Transmission Date: 20140515
  Serious: Yes (Other)
  Sender: FDA-Public Use
  Company Number: US-PFIZER INC-2012151217

PATIENT
  Age: 48 Year
  Sex: Female

DRUGS (29)
  1. CRESTOR [Concomitant]
     Dosage: 20 MG, EVERY EVENING
     Route: 048
  2. TOPAMAX [Concomitant]
     Dosage: 100 MG, 2X/DAY
     Route: 048
  3. K-DUR [Concomitant]
     Dosage: 10 MEQ, 2X/DAY
     Route: 048
  4. KLOR-CON [Concomitant]
     Dosage: 99 MG, 1X/DAY
     Route: 048
  5. PHENTERMINE [Concomitant]
     Dosage: 37.5 MG, 1X/DAY (EVERY MORNING)
     Route: 048
  6. DETROL LA [Suspect]
     Indication: HYPERTONIC BLADDER
     Dosage: 4 MG, 1X/DAY (24 HR CAPSULE, TAKE 1 TABLET)
     Route: 048
  7. GLUCOTROL XL [Suspect]
     Dosage: 5 MG, 1X/DAY
     Route: 048
  8. TOVIAZ [Concomitant]
     Indication: HYPERTONIC BLADDER
     Dosage: 8 MG, 1X/DAY
     Route: 048
  9. PROVENTIL HFA [Concomitant]
     Indication: WHEEZING
     Dosage: 90 UG, INHALE 1-2 PUFFS EVERY 6 HOURS AS NEEDED
     Route: 055
  10. VENTOLIN HFA [Concomitant]
     Indication: WHEEZING
     Dosage: 90 UG, INHALE 1-2 PUFFS EVERY 6 HOURS AS NEEDED
  11. PROVENTIL [Concomitant]
     Indication: WHEEZING
     Dosage: 3 ML EVERY 6 HOURS AS NEEDED
  12. ADVAIR [Concomitant]
     Dosage: 1 PUFF TWO TIMES DAILY
     Route: 055
  13. AMOXIL [Concomitant]
     Dosage: 500 MG, 3X/DAY
     Route: 048
  14. CALCIUM WITH VITAMIN D [Concomitant]
     Dosage: 500 MG, (1,250MG) - 200 UNIT/1 TABLET 2 X/DAY
     Route: 048
  15. CELEXA [Concomitant]
     Dosage: 20 MG, 1X/DAY
     Route: 048
  16. CLARINEX [Concomitant]
     Dosage: 5 MG, DAILY
     Route: 048
  17. ZYRTEC [Concomitant]
     Dosage: 10 MG, DAILY
     Route: 048
  18. ALLEGRA [Concomitant]
     Dosage: 180 MG, DAILY
     Route: 048
  19. DIABETA [Concomitant]
     Dosage: 5 MG, DAILY WITH BREAKFAST
     Route: 048
  20. ADVIL [Concomitant]
     Indication: PAIN
     Dosage: 800 MG, 4X/DAY AS NEEDED
     Route: 048
  21. ADVIL [Concomitant]
     Dosage: 800 MG, AS NEEDED 2 (TWO) TIMES DAILY AS NEEDED
     Route: 048
  22. MOTRIN [Concomitant]
     Indication: PAIN
     Dosage: 800 MG, 4X/DAY AS NEEDED
     Route: 048
  23. MOTRIN [Concomitant]
     Dosage: 800 MG, AS NEEDED 2 (TWO) TIMES DAILY AS NEEDED
     Route: 048
  24. FORTAMET [Concomitant]
     Dosage: 1000 MG, DAILY WITH BREAKFAST
     Route: 048
  25. JANUVIA [Concomitant]
     Dosage: 100 MG, DAILY
     Route: 048
  26. JANUMET [Concomitant]
     Dosage: 50-1,000 MG, 2X/DAY
     Route: 048
  27. NEXIUM [Concomitant]
     Dosage: 40 MG, EVERY MORNING BEFORE BREAKFAST
     Route: 048
  28. PRILOSEC [Concomitant]
     Dosage: 20 MG, DAILY
     Route: 048
  29. PHENERGAN [Concomitant]
     Dosage: 25 MG, EVERY 6 HOURS AS NEEDED
     Route: 048

REACTIONS (15)
  - Diabetes mellitus inadequate control [Unknown]
  - Essential hypertension [Unknown]
  - Chronic obstructive pulmonary disease [Unknown]
  - Obesity [Unknown]
  - Depression [Unknown]
  - Tooth abscess [Unknown]
  - Blood cholesterol increased [Unknown]
  - Migraine with aura [Unknown]
  - Vitamin D deficiency [Unknown]
  - Vitamin B12 deficiency [Unknown]
  - Gastrooesophageal reflux disease [Unknown]
  - Tobacco user [Unknown]
  - Muscle spasms [Unknown]
  - Arthralgia [Unknown]
  - Nausea [Unknown]
